FAERS Safety Report 5274417-X (Version None)
Quarter: 2007Q1

REPORT INFORMATION
  Report Type: 
  Country: None (occurrence: None)
  Receive Date: 20070323
  Receipt Date: 20070312
  Transmission Date: 20070707
  Serious: Yes (Other)
  Sender: FDA-Public Use
  Company Number: AU-PFIZER INC-2007013477

PATIENT
  Sex: Female
  Weight: 60 kg

DRUGS (5)
  1. SILDENAFIL (PAH) [Suspect]
     Indication: PULMONARY HYPERTENSION
     Route: 048
  2. OMEPRAZOLE [Concomitant]
     Route: 048
  3. SPIRONOLACTONE [Concomitant]
     Route: 048
  4. WARFARIN SODIUM [Concomitant]
     Route: 048
  5. OLANZAPINE [Concomitant]
     Route: 048

REACTIONS (7)
  - FALL [None]
  - GAIT DISTURBANCE [None]
  - HYPERREFLEXIA [None]
  - HYPERTENSION [None]
  - HYPERTONIA [None]
  - INCONTINENCE [None]
  - SHUNT OCCLUSION [None]
